FAERS Safety Report 17046068 (Version 2)
Quarter: 2021Q1

REPORT INFORMATION
  Report Type: Spontaneous
  Country: IT (occurrence: IT)
  Receive Date: 20191119
  Receipt Date: 20210212
  Transmission Date: 20210419
  Serious: Yes (Death, Other)
  Sender: FDA-Public Use
  Company Number: IT-AMGEN-ITASP2019187983

PATIENT

DRUGS (2)
  1. BLINATUMOMAB [Suspect]
     Active Substance: BLINATUMOMAB
     Indication: ACUTE LYMPHOCYTIC LEUKAEMIA
     Dosage: 9 MICROGRAM, QD FOR 1 WEEK
     Route: 065
  2. PONATINIB [Concomitant]
     Active Substance: PONATINIB

REACTIONS (5)
  - Acute lymphocytic leukaemia recurrent [Fatal]
  - Graft versus host disease [Recovered/Resolved]
  - Tremor [Unknown]
  - Confusional state [Unknown]
  - Seizure [Unknown]
